FAERS Safety Report 17256780 (Version 3)
Quarter: 2020Q1

REPORT INFORMATION
  Report Type: Spontaneous
  Country: IT (occurrence: IT)
  Receive Date: 20200110
  Receipt Date: 20200310
  Transmission Date: 20200409
  Serious: Yes (Other)
  Sender: FDA-Public Use
  Company Number: IT-BAYER-2020-004108

PATIENT
  Age: 46 Year
  Sex: Female

DRUGS (1)
  1. KYLEENA [Suspect]
     Active Substance: LEVONORGESTREL
     Dosage: 17.5 ?G PER DAY, CONTINUOUSLY
     Route: 015
     Dates: start: 201906, end: 20200114

REACTIONS (12)
  - Headache [None]
  - Dysmenorrhoea [None]
  - Back pain [Not Recovered/Not Resolved]
  - Weight increased [None]
  - Abdominal pain lower [None]
  - Mood swings [None]
  - Menorrhagia [None]
  - Arrhythmia [Recovering/Resolving]
  - Vaginal haemorrhage [Recovered/Resolved]
  - Amenorrhoea [None]
  - Fluid retention [Not Recovered/Not Resolved]
  - Asthenopia [None]

NARRATIVE: CASE EVENT DATE: 201906
